FAERS Safety Report 14005829 (Version 1)
Quarter: 2017Q3

REPORT INFORMATION
  Report Type: Spontaneous
  Country: US (occurrence: US)
  Receive Date: 20170923
  Receipt Date: 20170923
  Transmission Date: 20171128
  Serious: Yes (Hospitalization, Other)
  Sender: FDA-Public Use
  Company Number: US-MYLANLABS-2017M1059607

PATIENT
  Sex: Female

DRUGS (3)
  1. NORTHERA [Suspect]
     Active Substance: DROXIDOPA
     Dosage: 200-400MG, TID
  2. MIDODRINE [Suspect]
     Active Substance: MIDODRINE
     Indication: ORTHOSTATIC HYPOTENSION
     Dosage: UNK, QD
  3. NORTHERA [Suspect]
     Active Substance: DROXIDOPA
     Indication: ORTHOSTATIC HYPOTENSION
     Dosage: 400 MG, TID

REACTIONS (3)
  - Pneumonia [Unknown]
  - Supine hypertension [Unknown]
  - Syncope [Unknown]
